FAERS Safety Report 11796312 (Version 1)
Quarter: 2015Q4

REPORT INFORMATION
  Report Type: Spontaneous
  Country: FR (occurrence: FR)
  Receive Date: 20151203
  Receipt Date: 20151203
  Transmission Date: 20160305
  Serious: Yes (Death, Other)
  Sender: FDA-Public Use
  Company Number: FR-CELGENE-FRA-2015116197

PATIENT

DRUGS (3)
  1. DEXAMETHASONE. [Concomitant]
     Active Substance: DEXAMETHASONE
     Indication: PLASMA CELL MYELOMA
     Route: 048
  2. REVLIMID [Suspect]
     Active Substance: LENALIDOMIDE
     Indication: PLASMA CELL MYELOMA
     Dosage: 25 MILLIGRAM
     Route: 048
  3. IXAZOMIB [Concomitant]
     Active Substance: IXAZOMIB
     Indication: PLASMA CELL MYELOMA
     Route: 048

REACTIONS (12)
  - Death [Fatal]
  - Pneumonia [Unknown]
  - Neuropathy peripheral [Unknown]
  - Rash [Unknown]
  - Neutropenia [Unknown]
  - Nausea [Unknown]
  - Thrombocytopenia [Unknown]
  - Anaemia [Unknown]
  - Diarrhoea [Unknown]
  - Vomiting [Unknown]
  - Renal failure [Unknown]
  - Cardiac failure [Unknown]
